FAERS Safety Report 18438196 (Version 1)
Quarter: 2020Q4

REPORT INFORMATION
  Report Type: Spontaneous
  Country: US (occurrence: US)
  Receive Date: 20201028
  Receipt Date: 20201028
  Transmission Date: 20210114
  Serious: Yes (Other)
  Sender: FDA-Public Use
  Company Number: US-MEITHEAL PHARMACEUTICALS-2020MHL00070

PATIENT
  Age: 89 Year
  Sex: Male

DRUGS (1)
  1. PHENYLEPHRINE [Suspect]
     Active Substance: PHENYLEPHRINE HYDROCHLORIDE
     Route: 048

REACTIONS (1)
  - Posterior reversible encephalopathy syndrome [Unknown]
